FAERS Safety Report 8474435-4 (Version None)
Quarter: 2012Q2

REPORT INFORMATION
  Report Type: 
  Country: None (occurrence: None)
  Receive Date: 20120628
  Receipt Date: 20120623
  Transmission Date: 20120825
  Serious: Yes (Other)
  Sender: FDA-Public Use
  Company Number: PHHY2012PT054674

PATIENT

DRUGS (1)
  1. CARBAMAZEPINE [Suspect]

REACTIONS (4)
  - TOTAL LUNG CAPACITY DECREASED [None]
  - HYPOGAMMAGLOBULINAEMIA [None]
  - EXERCISE TOLERANCE DECREASED [None]
  - INTERSTITIAL LUNG DISEASE [None]
